FAERS Safety Report 8594200-7 (Version None)
Quarter: 2012Q3

REPORT INFORMATION
  Report Type: 
  Country: None (occurrence: None)
  Receive Date: 20120814
  Receipt Date: 20120807
  Transmission Date: 20120928
  Serious: Yes (Hospitalization)
  Sender: FDA-Public Use
  Company Number: FR-RB-043274-12

PATIENT
  Sex: Male

DRUGS (6)
  1. NOCTAMIDE [Suspect]
     Indication: PSYCHOTIC DISORDER
     Route: 048
     Dates: end: 20120607
  2. XANAX [Suspect]
     Indication: PSYCHOTIC DISORDER
     Route: 048
     Dates: end: 20120607
  3. DEPAMIDE [Suspect]
     Indication: PSYCHOTIC DISORDER
     Route: 048
     Dates: end: 20120607
  4. CHLORPROMAZINE HCL [Suspect]
     Indication: PSYCHOTIC DISORDER
     Route: 048
     Dates: end: 20120607
  5. ARTANE [Suspect]
     Indication: PSYCHOTIC DISORDER
     Route: 048
     Dates: end: 20120607
  6. SUBUTEX [Suspect]
     Indication: DRUG DEPENDENCE
     Route: 048

REACTIONS (1)
  - CONFUSIONAL STATE [None]
